FAERS Safety Report 22137056 (Version 6)
Quarter: 2023Q2

REPORT INFORMATION
  Report Type: Report from Study
  Country: US (occurrence: US)
  Receive Date: 20230324
  Receipt Date: 20230525
  Transmission Date: 20230722
  Serious: Yes (Other)
  Sender: FDA-Public Use
  Company Number: US-002147023-NVSC2023US068739

PATIENT
  Age: 56 Year
  Sex: Male

DRUGS (7)
  1. COSENTYX [Suspect]
     Active Substance: SECUKINUMAB
     Indication: Psoriatic arthropathy
     Dosage: 150 MG, QW (Q WEEK FOR FIVE WEEKS AND THEN Q FOUR WEEKS)
     Route: 058
     Dates: start: 20230316
  2. HUMIRA [Suspect]
     Active Substance: ADALIMUMAB
     Indication: Psoriatic arthropathy
     Dosage: 40 MG, Q2W (EVERY 2 WEEKS) (VIA SINGLE DOSE PEN)
     Route: 058
     Dates: start: 20220812, end: 202208
  3. HUMIRA [Suspect]
     Active Substance: ADALIMUMAB
     Dosage: 40 MG, Q2W (EVERY 2 WEEKS) (VIA SINGLE DOSE PEN)
     Route: 058
     Dates: start: 20220815
  4. DEPO-MEDROL [Suspect]
     Active Substance: METHYLPREDNISOLONE ACETATE
     Indication: Product used for unknown indication
     Dosage: UNK
     Route: 065
  5. LEVOTHYROXINE SODIUM [Concomitant]
     Active Substance: LEVOTHYROXINE SODIUM
     Indication: Product used for unknown indication
     Dosage: UNK
     Route: 065
  6. FLECAINIDE ACETATE [Concomitant]
     Active Substance: FLECAINIDE ACETATE
     Indication: Product used for unknown indication
     Dosage: UNK
     Route: 065
  7. DIGOXIN [Concomitant]
     Active Substance: DIGOXIN
     Indication: Product used for unknown indication
     Dosage: 0.125 MG, QD (EVERY 1 DAYS)
     Route: 065
     Dates: start: 20180302

REACTIONS (15)
  - Psoriatic arthropathy [Unknown]
  - Pain in extremity [Recovered/Resolved]
  - Arthralgia [Unknown]
  - Peripheral swelling [Unknown]
  - Fungal infection [Not Recovered/Not Resolved]
  - Injection site inflammation [Unknown]
  - Injection site erythema [Unknown]
  - Pain [Recovered/Resolved]
  - Nail disorder [Recovered/Resolved]
  - Pain [Not Recovered/Not Resolved]
  - Adverse drug reaction [Unknown]
  - Drug specific antibody present [Unknown]
  - Therapeutic product effect incomplete [Unknown]
  - Therapeutic product effect decreased [Unknown]
  - Drug ineffective [Unknown]

NARRATIVE: CASE EVENT DATE: 20230101
